FAERS Safety Report 6811487-9 (Version None)
Quarter: 2010Q2

REPORT INFORMATION
  Report Type: 
  Country: None (occurrence: None)
  Receive Date: 20100629
  Receipt Date: 20100629
  Transmission Date: 20101027
  Serious: Yes (Hospitalization)
  Sender: FDA-Public Use
  Company Number: None

PATIENT
  Age: 37 Year
  Sex: Female
  Weight: 99.7913 kg

DRUGS (1)
  1. YAZ [Suspect]
     Indication: CONTRACEPTION
     Dosage: ONE PILL PER DAY PO
     Route: 048
     Dates: start: 20060311, end: 20090515

REACTIONS (2)
  - GALLBLADDER DISORDER [None]
  - UNEVALUABLE EVENT [None]
